FAERS Safety Report 10576489 (Version 1)
Quarter: 2014Q4

REPORT INFORMATION
  Report Type: Spontaneous
  Country: US (occurrence: US)
  Receive Date: 20141111
  Receipt Date: 20141111
  Transmission Date: 20150529
  Serious: Yes (Death, Other)
  Sender: FDA-Public Use
  Company Number: US-ACTELION-A-NJ2014-107582

PATIENT
  Age: 50 Year
  Sex: Female

DRUGS (11)
  1. OPSUMIT [Suspect]
     Active Substance: MACITENTAN
     Indication: PULMONARY ARTERIAL HYPERTENSION
     Dosage: 10 MG, QD
     Route: 048
     Dates: start: 20140731
  2. GABAPENTIN. [Concomitant]
     Active Substance: GABAPENTIN
  3. VELETRI [Suspect]
     Active Substance: EPOPROSTENOL
     Indication: PULMONARY ARTERIAL HYPERTENSION
     Dosage: 24 NG/KG, PER MIN
     Route: 042
     Dates: start: 20140205
  4. LOSARTAN [Concomitant]
     Active Substance: LOSARTAN
  5. FUROSEMIDE. [Concomitant]
     Active Substance: FUROSEMIDE
  6. PREDNISONE. [Concomitant]
     Active Substance: PREDNISONE
  7. GLYBURIDE. [Concomitant]
     Active Substance: GLYBURIDE
  8. LANTUS [Concomitant]
     Active Substance: INSULIN GLARGINE
  9. CELLCEPT [Concomitant]
     Active Substance: MYCOPHENOLATE MOFETIL\MYCOPHENOLATE MOFETIL HYDROCHLORIDE
  10. IRON [Concomitant]
     Active Substance: IRON
  11. SILDENAFIL. [Concomitant]
     Active Substance: SILDENAFIL

REACTIONS (3)
  - Fall [Unknown]
  - Pulmonary arterial hypertension [Fatal]
  - Hip fracture [Unknown]

NARRATIVE: CASE EVENT DATE: 20141020
